FAERS Safety Report 18609338 (Version 1)
Quarter: 2020Q4

REPORT INFORMATION
  Report Type: Other
  Country: FR (occurrence: FR)
  Receive Date: 20201214
  Receipt Date: 20201214
  Transmission Date: 20210114
  Serious: Yes (Other)
  Sender: FDA-Public Use
  Company Number: FR-ROCHE-2674983

PATIENT

DRUGS (1)
  1. SOMATROPIN. [Suspect]
     Active Substance: SOMATROPIN
     Indication: PRADER-WILLI SYNDROME
     Route: 065

REACTIONS (8)
  - Diabetes mellitus inadequate control [Unknown]
  - Scoliosis [Unknown]
  - Hypertension [Unknown]
  - Sleep apnoea syndrome [Unknown]
  - Off label use [Unknown]
  - Glucose tolerance impaired [Unknown]
  - Intentional product use issue [Unknown]
  - Type 2 diabetes mellitus [Unknown]
